FAERS Safety Report 9755664 (Version 1)
Quarter: 2013Q4

REPORT INFORMATION
  Report Type: Spontaneous
  Country: US (occurrence: US)
  Receive Date: 20131213
  Receipt Date: 20131213
  Transmission Date: 20140711
  Serious: No
  Sender: FDA-Public Use
  Company Number: US-GLAXOSMITHKLINE-A1022162A

PATIENT
  Age: 19 Year
  Sex: Male

DRUGS (2)
  1. EQUATE NTS 21MG, CLEAR [Suspect]
     Indication: EX-TOBACCO USER
     Dates: start: 20130430, end: 20130430
  2. NEXIUM [Concomitant]

REACTIONS (2)
  - Hypersensitivity [Recovered/Resolved]
  - Application site rash [Recovered/Resolved]
